FAERS Safety Report 18132438 (Version 9)
Quarter: 2023Q1

REPORT INFORMATION
  Report Type: Spontaneous
  Country: GB (occurrence: GB)
  Receive Date: 20200811
  Receipt Date: 20230125
  Transmission Date: 20230417
  Serious: Yes (Other)
  Sender: FDA-Public Use
  Company Number: None

PATIENT
  Age: 53 Year
  Sex: Female

DRUGS (16)
  1. PREGABALIN [Suspect]
     Active Substance: PREGABALIN
     Indication: Sedation
     Dosage: UNK
     Route: 065
  2. PREGABALIN [Suspect]
     Active Substance: PREGABALIN
     Indication: Neuropathy peripheral
     Dosage: UNK, HARD CAPSULE
     Route: 065
  3. PREGABALIN [Suspect]
     Active Substance: PREGABALIN
     Dosage: UNK
     Route: 065
  4. PREGABALIN [Suspect]
     Active Substance: PREGABALIN
     Dosage: UNK
     Route: 065
  5. MAVENCLAD [Suspect]
     Active Substance: CLADRIBINE
     Indication: Multiple sclerosis
     Dosage: FIRST YEAR FIRST WEEK THERAPY: TWO TABLETS (EACH OF 10MG) ON DAY 1 AND ONE TABLET ON DAYS 2 TO 5 (UN
     Route: 048
     Dates: start: 20181001, end: 20181011
  6. MAVENCLAD [Suspect]
     Active Substance: CLADRIBINE
     Dosage: FIRST YEAR SECOND WEEK THERAPY: TWO TABLETS (EACH OF 10MG) ON DAY 1 AND ONE TABLET ON DAYS 2 TO 5; T
     Route: 048
     Dates: start: 20181029, end: 20181108
  7. MAVENCLAD [Suspect]
     Active Substance: CLADRIBINE
     Dosage: FIRST YEAR SECOND WEEK THERAPY: TWO TABLETS (EACH OF 10MG) ON DAY 1 AND ONE TABLET ON DAYS 2 TO 5 (U
     Route: 048
     Dates: start: 20181029, end: 201811
  8. MAVENCLAD [Suspect]
     Active Substance: CLADRIBINE
     Dosage: FIRST YEAR FIRST WEEK THERAPY: TWO TABLETS (EACH OF 10MG) ON DAY 1 AND ONE TABLET ON DAYS 2 TO 5 (UN
     Route: 048
     Dates: start: 20181001, end: 20181011
  9. MAVENCLAD [Suspect]
     Active Substance: CLADRIBINE
     Dosage: FIRST YEAR FIRST WEEK THERAPY: TWO TABLETS (EACH OF 10MG) ON DAY 1 AND ONE TABLET ON DAYS 2 TO 5; TA
     Route: 048
     Dates: start: 20181001, end: 20181011
  10. FLUTICASONE FUROATE [Concomitant]
     Active Substance: FLUTICASONE FUROATE
     Indication: Product used for unknown indication
     Dosage: UNK, NASAL SPRAY
     Route: 065
  11. FLUTICASONE FUROATE [Concomitant]
     Active Substance: FLUTICASONE FUROATE
     Dosage: UNK, NASAL SPRAY
     Route: 065
  12. FLUTICASONE FUROATE [Concomitant]
     Active Substance: FLUTICASONE FUROATE
     Dosage: UNK, NASAL SPRAY
     Route: 065
  13. FLUTICASONE FUROATE [Concomitant]
     Active Substance: FLUTICASONE FUROATE
     Dosage: UNK
     Route: 065
  14. CLONAZEPAM [Concomitant]
     Active Substance: CLONAZEPAM
     Indication: Muscle spasms
     Dosage: 1 DOSAGE FORM,1 AS NECESSARY
     Route: 065
  15. CLONAZEPAM [Concomitant]
     Active Substance: CLONAZEPAM
     Dosage: UNK, PRN
     Route: 065
  16. CLONAZEPAM [Concomitant]
     Active Substance: CLONAZEPAM
     Dosage: UNK, AS NECESSARY
     Route: 065

REACTIONS (14)
  - Blood pressure fluctuation [Not Recovered/Not Resolved]
  - Balance disorder [Unknown]
  - Dizziness [Not Recovered/Not Resolved]
  - Fatigue [Not Recovered/Not Resolved]
  - Feeling abnormal [Not Recovered/Not Resolved]
  - Fine motor skill dysfunction [Not Recovered/Not Resolved]
  - Hangover [Unknown]
  - Insomnia [Not Recovered/Not Resolved]
  - Multiple sclerosis [Not Recovered/Not Resolved]
  - Multiple sclerosis pseudo relapse [Not Recovered/Not Resolved]
  - Neuropathy peripheral [Not Recovered/Not Resolved]
  - Sensory loss [Not Recovered/Not Resolved]
  - Stress [Unknown]
  - Weight decreased [Unknown]

NARRATIVE: CASE EVENT DATE: 20181001
